FAERS Safety Report 21678140 (Version 1)
Quarter: 2022Q4

REPORT INFORMATION
  Report Type: Spontaneous
  Country: ES (occurrence: ES)
  Receive Date: 20221203
  Receipt Date: 20221203
  Transmission Date: 20230112
  Serious: Yes (Other)
  Sender: FDA-Public Use
  Company Number: None

PATIENT
  Age: 81 Year
  Sex: Female

DRUGS (10)
  1. PREGABALIN [Suspect]
     Active Substance: PREGABALIN
     Indication: Product used for unknown indication
     Dosage: PREGABALINA (3897A), UNIT DOSE :   150 MG, FREQUENCY TIME : 1 DAY, DURATION : 1 DAY
     Route: 065
     Dates: start: 20220810, end: 20220810
  2. PREGABALIN [Suspect]
     Active Substance: PREGABALIN
     Dosage: DURATION : 1 DAY, FREQUENCY TIME : 1 DAY , UNIT DOSE :  225 MG
     Route: 065
     Dates: start: 20220811, end: 20220811
  3. EDOXABAN TOSYLATE [Concomitant]
     Active Substance: EDOXABAN TOSYLATE
     Indication: Product used for unknown indication
     Dosage: STRENGTH AND UNIT DOSE : 60 MG, 28 TABLETS, FREQUENCY TIME : 1 DAY
     Dates: start: 20190318
  4. ATORVASTATIN CINFA [Concomitant]
     Indication: Product used for unknown indication
     Dosage: UNIT DOSE : 20 MG  ATORVASTATIN CINFA 20 MG FILM-COATED TABLETS EFG, 28 TABLETS,  FREQUENCY TIME : 1
     Dates: start: 20181106
  5. HYDROCHLOROTHIAZIDE KERN PHARMA [Concomitant]
     Indication: Product used for unknown indication
     Dosage: UNIT DOSE AND STRENGTH : 25 MG, 20 TABLETS , FREQUENCY TIME : 1 DAYS
     Dates: start: 20181106
  6. VALSARTAN CINFA [Concomitant]
     Indication: Product used for unknown indication
     Dosage: VALSARTAN CINFA 40 MG FILM-COATED TABLETS EFG, 14 TABLETS, FREQUENCY TIME : 1 DAY
     Dates: start: 20181203
  7. LEVETIRACETAM CINFA [Concomitant]
     Indication: Product used for unknown indication
     Dosage: LEVETIRACETAM CINFA 1000 MG FILM-COATED TABLETS EFG, 60 TABLETS, FREQUENCY TIME : 1 DAY
     Dates: start: 20220427
  8. BRINTELLIX [Concomitant]
     Active Substance: VORTIOXETINE HYDROBROMIDE
     Indication: Product used for unknown indication
     Dosage: 28 TABLETS , UNIT DOSE AND STRENGTH : 10 MG, FREQUENCY TIME : 1 DAY
     Dates: start: 20190918
  9. AMLODIPINE CINFA [Concomitant]
     Indication: Product used for unknown indication
     Dosage: AMLODIPINE CINFA 5 MG EFG TABLETS, 30 TABLETS, UNIT DOSE  5 MG, FREQUENCY TIME : 1 DAY
     Dates: start: 20181106
  10. LORAZEPAM [Concomitant]
     Active Substance: LORAZEPAM
     Indication: Product used for unknown indication
     Dosage: 50 TABLETS, UNIT DOSE AND STRENGTH : 1 MG,  FREQUENCY TIME : 1 DAY
     Dates: start: 20220712

REACTIONS (3)
  - Speech disorder [Recovered/Resolved]
  - Asthenia [Recovered/Resolved]
  - Loss of consciousness [Recovered/Resolved]

NARRATIVE: CASE EVENT DATE: 20220811
